FAERS Safety Report 9436668 (Version 1)
Quarter: 2013Q3

REPORT INFORMATION
  Report Type: Spontaneous
  Country: TR (occurrence: TR)
  Receive Date: 20130802
  Receipt Date: 20130802
  Transmission Date: 20140515
  Serious: Yes (Death)
  Sender: FDA-Public Use
  Company Number: TR-TEVA-421303ISR

PATIENT
  Age: 31 Year
  Sex: Male

DRUGS (11)
  1. FLUCONAZOLE [Suspect]
     Indication: PROPHYLAXIS
     Route: 042
  2. FLUCONAZOLE [Suspect]
     Indication: PROPHYLAXIS
     Dosage: 150 MG/DAY
     Route: 048
  3. CIPROFLOXACIN [Suspect]
     Route: 042
  4. BASILIXIMAB [Suspect]
     Indication: IMMUNOSUPPRESSANT DRUG THERAPY
     Dosage: ON D0, D4
     Route: 065
  5. TACROLIMUS [Suspect]
     Indication: IMMUNOSUPPRESSANT DRUG THERAPY
     Dosage: SUBSEQUENTLY INCREASED
     Route: 065
  6. TACROLIMUS [Suspect]
     Indication: TRANSPLANT REJECTION
     Dosage: INCREASED
     Route: 065
  7. MYCOPHENOLATE SODIUM [Suspect]
     Indication: IMMUNOSUPPRESSANT DRUG THERAPY
     Route: 065
  8. PREDNISOLONE [Suspect]
     Indication: IMMUNOSUPPRESSANT DRUG THERAPY
     Dosage: 500MG ON D1; THEN 250MG
     Route: 042
  9. PREDNISOLONE [Suspect]
     Indication: IMMUNOSUPPRESSANT DRUG THERAPY
     Dosage: 250MG ON D2; THEN 40MG
     Route: 042
  10. PREDNISOLONE [Suspect]
     Indication: IMMUNOSUPPRESSANT DRUG THERAPY
     Dosage: 40MG
     Route: 042
  11. PIPERACILLIN, TAZOBACTAM [Suspect]
     Indication: ANTIBIOTIC PROPHYLAXIS
     Route: 065

REACTIONS (5)
  - Systemic candida [Fatal]
  - Drug ineffective [Fatal]
  - Neutropenia [Recovered/Resolved]
  - Disseminated intravascular coagulation [Fatal]
  - Bone marrow toxicity [Fatal]
